FAERS Safety Report 26179956 (Version 1)
Quarter: 2025Q4

REPORT INFORMATION
  Report Type: Spontaneous
  Country: CA (occurrence: CA)
  Receive Date: 20251219
  Receipt Date: 20251219
  Transmission Date: 20260117
  Serious: Yes (Other)
  Sender: NOVO NORDISK
  Company Number: None

PATIENT
  Age: 78 Year
  Sex: Male

DRUGS (3)
  1. SEMAGLUTIDE [Suspect]
     Active Substance: SEMAGLUTIDE
     Indication: Product used for unknown indication
     Dosage: UNK QW
     Route: 058
  2. SILIQ [Suspect]
     Active Substance: BRODALUMAB
     Dosage: 210 MG, QW (THERAPY DURATION: 1 MONTH)
     Route: 058
  3. SILIQ [Suspect]
     Active Substance: BRODALUMAB
     Indication: Psoriasis
     Dosage: 210 MG 1 EVERY 2 WEEKS (THERAPY DURATION: 2 YEARS)
     Route: 058

REACTIONS (4)
  - Back pain [Recovered/Resolved]
  - Diabetic foot [Recovered/Resolved]
  - Gait inability [Recovered/Resolved]
  - Psoriasis [Recovered/Resolved]
